FAERS Safety Report 4394804-1 (Version None)
Quarter: 2004Q3

REPORT INFORMATION
  Report Type: 
  Country: None (occurrence: None)
  Receive Date: 20040706
  Receipt Date: 20040628
  Transmission Date: 20050211
  Serious: Yes (Other)
  Sender: FDA-Public Use
  Company Number: 2004-06-1964

PATIENT
  Age: 47 Year
  Sex: Male

DRUGS (9)
  1. RINDERON                 LIKE  CELESTONE [Suspect]
  2. SALICYLAMIDE [Suspect]
  3. HIRNAMIN [Suspect]
  4. AKINETON [Suspect]
  5. HALOPERIDOL [Suspect]
  6. PHENYTOIN [Suspect]
  7. SEROQUEL [Suspect]
  8. GASTER [Suspect]
  9. TEGRETOL [Suspect]

REACTIONS (6)
  - ALANINE AMINOTRANSFERASE INCREASED [None]
  - ASPARTATE AMINOTRANSFERASE INCREASED [None]
  - BLOOD ALKALINE PHOSPHATASE INCREASED [None]
  - BLOOD BILIRUBIN INCREASED [None]
  - GAMMA-GLUTAMYLTRANSFERASE INCREASED [None]
  - LIVER DISORDER [None]
